FAERS Safety Report 15630275 (Version 1)
Quarter: 2018Q4

REPORT INFORMATION
  Report Type: Spontaneous
  Country: US (occurrence: US)
  Receive Date: 20181117
  Receipt Date: 20181117
  Transmission Date: 20190205
  Serious: Yes (Hospitalization)
  Sender: FDA-Public Use
  Company Number: None

PATIENT
  Sex: Female
  Weight: 47.25 kg

DRUGS (1)
  1. FERRLECIT [Suspect]
     Active Substance: SODIUM FERRIC GLUCONATE COMPLEX
     Indication: ANAEMIA
     Dosage: ?          OTHER FREQUENCY:INFUSION LAB RN;?
     Route: 042
     Dates: start: 20131020, end: 20131220

REACTIONS (12)
  - Paraesthesia [None]
  - Burning sensation [None]
  - Nail discolouration [None]
  - Urticaria [None]
  - Feeling cold [None]
  - Skin discolouration [None]
  - Pain [None]
  - Skin weeping [None]
  - Hypersensitivity [None]
  - Pruritus [None]
  - Oedema peripheral [None]
  - Sensory loss [None]
